FAERS Safety Report 8550708-1 (Version None)
Quarter: 2012Q3

REPORT INFORMATION
  Report Type: 
  Country: None (occurrence: None)
  Receive Date: 20120730
  Receipt Date: 20120723
  Transmission Date: 20120928
  Serious: Yes (Death)
  Sender: FDA-Public Use
  Company Number: US-GLAXOSMITHKLINE-A0987452A

PATIENT
  Sex: Male

DRUGS (7)
  1. ATIVAN [Concomitant]
  2. NEUPOGEN [Concomitant]
  3. TYKERB [Suspect]
     Indication: BREAST CANCER
     Dosage: 1250MG PER DAY
     Route: 048
     Dates: start: 20110730
  4. NEULASTA [Concomitant]
  5. OXYCODONE HCL [Concomitant]
  6. NEXIUM [Concomitant]
  7. XELODA [Concomitant]

REACTIONS (3)
  - SEPTIC SHOCK [None]
  - BREAST CANCER METASTATIC [None]
  - PNEUMONIA [None]
